FAERS Safety Report 16680690 (Version 2)
Quarter: 2019Q3

REPORT INFORMATION
  Report Type: Spontaneous
  Country: US (occurrence: US)
  Receive Date: 20190808
  Receipt Date: 20190913
  Transmission Date: 20191004
  Serious: Yes (Other)
  Sender: FDA-Public Use
  Company Number: US-CELGENEUS-USA-20190801361

PATIENT
  Age: 65 Year
  Sex: Male

DRUGS (1)
  1. POMALYST [Suspect]
     Active Substance: POMALIDOMIDE
     Indication: PLASMA CELL MYELOMA
     Dosage: 4 MILLIGRAM AT ABOUT THE SAME TIME EACH. MAYBE TAKEN WITH OR WITHOUT FOOD, TAKE WITH WATER AND SWALL
     Route: 048
     Dates: start: 20190605

REACTIONS (3)
  - White blood cell count decreased [Unknown]
  - Anaemia [Unknown]
  - Fatigue [Unknown]

NARRATIVE: CASE EVENT DATE: 20190711
